FAERS Safety Report 19080308 (Version 1)
Quarter: 2021Q2

REPORT INFORMATION
  Report Type: Spontaneous
  Country: US (occurrence: US)
  Receive Date: 20210401
  Receipt Date: 20210401
  Transmission Date: 20210717
  Serious: No
  Sender: FDA-Public Use
  Company Number: US-GLAXOSMITHKLINE-US2021AMR071543

PATIENT
  Sex: Female

DRUGS (2)
  1. ZOFRAN [Suspect]
     Active Substance: ONDANSETRON HYDROCHLORIDE
     Indication: PRODUCT USED FOR UNKNOWN INDICATION
     Dosage: UNK
  2. ZEJULA [Suspect]
     Active Substance: NIRAPARIB
     Indication: OVARIAN CANCER
     Dosage: 200 MG, QD

REACTIONS (4)
  - Nausea [Not Recovered/Not Resolved]
  - Dyspepsia [Not Recovered/Not Resolved]
  - Fatigue [Not Recovered/Not Resolved]
  - Constipation [Unknown]
